FAERS Safety Report 5117200-8 (Version None)
Quarter: 2006Q3

REPORT INFORMATION
  Report Type: 
  Country: None (occurrence: None)
  Receive Date: 20060926
  Receipt Date: 20060913
  Transmission Date: 20061208
  Serious: Yes (Other)
  Sender: FDA-Public Use
  Company Number: 2006111883

PATIENT
  Age: 72 Year
  Sex: Female

DRUGS (2)
  1. LYRICA [Suspect]
     Indication: POST HERPETIC NEURALGIA
     Dosage: (2 IN 1 D)
     Dates: start: 20060101
  2. HERBAL PREPARATION (HERBAL PREPARATION) [Concomitant]

REACTIONS (5)
  - ARTHRITIS [None]
  - CHONDROPATHY [None]
  - CONDITION AGGRAVATED [None]
  - DIZZINESS [None]
  - URINARY INCONTINENCE [None]
